FAERS Safety Report 20809927 (Version 9)
Quarter: 2022Q4

REPORT INFORMATION
  Report Type: Report from Study
  Country: US (occurrence: US)
  Receive Date: 20220510
  Receipt Date: 20221222
  Transmission Date: 20230113
  Serious: No
  Sender: FDA-Public Use
  Company Number: US-NOVARTISTESTPH-NVSC2022US106532

PATIENT
  Age: 47 Year
  Sex: Male

DRUGS (2)
  1. KESIMPTA [Suspect]
     Active Substance: OFATUMUMAB
     Indication: Multiple sclerosis
     Dosage: 20 MG, QMO
     Route: 058
     Dates: start: 20220428
  2. KESIMPTA [Suspect]
     Active Substance: OFATUMUMAB
     Dosage: 20 MG, QMO (1 PEN EACH WEEK FOR 3 TOTAL WEEKS. SKIP A WEEK. BEGIN ONCE A MONTH)
     Route: 058
     Dates: start: 202204

REACTIONS (8)
  - Influenza like illness [Unknown]
  - Peripheral coldness [Unknown]
  - Fatigue [Unknown]
  - Lethargy [Unknown]
  - Pain [Unknown]
  - Muscular weakness [Recovered/Resolved]
  - Muscular weakness [Recovered/Resolved]
  - Neuralgia [Recovering/Resolving]

NARRATIVE: CASE EVENT DATE: 20220428
